FAERS Safety Report 21224121 (Version 2)
Quarter: 2022Q4

REPORT INFORMATION
  Report Type: Spontaneous
  Country: CA (occurrence: CA)
  Receive Date: 20220817
  Receipt Date: 20221020
  Transmission Date: 20230112
  Serious: Yes (Death, Hospitalization, Other)
  Sender: FDA-Public Use
  Company Number: CA-PFIZER INC-2020476386

PATIENT
  Age: 57 Year
  Sex: Male

DRUGS (14)
  1. RUXIENCE [Suspect]
     Active Substance: RITUXIMAB-PVVR
     Indication: Granulomatosis with polyangiitis
     Dosage: 1000 MG, EVERY 6 MONTHS
     Route: 042
     Dates: start: 20210224, end: 20210224
  2. RUXIENCE [Suspect]
     Active Substance: RITUXIMAB-PVVR
     Dosage: 1000 MG, EVERY 6 MONTHS
     Route: 042
     Dates: start: 20210826, end: 20210826
  3. RUXIENCE [Suspect]
     Active Substance: RITUXIMAB-PVVR
     Dosage: 500 MG, EVERY 6 MONTHS (255-MINUTE INFUSION)
     Route: 042
     Dates: start: 20220215
  4. ATORVASTATIN [Concomitant]
     Active Substance: ATORVASTATIN
     Dosage: 1 DF, DOSAGE INFORMATION NOT AVAILABLE
     Route: 065
  5. CANDESARTAN [Concomitant]
     Active Substance: CANDESARTAN
     Dosage: 1 DF, DOSAGE INFORMATION NOT AVAILABLE ON HOLD
     Route: 065
  6. COVID-19 VACCINE [Concomitant]
     Indication: COVID-19 immunisation
     Dosage: DOSE 3 (BOOSTER), SINGLE
  7. COVID-19 VACCINE [Concomitant]
     Dosage: DOSE 2, SINGLE
  8. COVID-19 VACCINE [Concomitant]
     Dosage: DOSE 1, SINGLE
  9. CYCLOBENZAPRINE [Concomitant]
     Active Substance: CYCLOBENZAPRINE
     Dosage: 1 DF, DOSAGE INFORMATION NOT AVAILABLE
     Route: 065
  10. FUROSEMIDE [Concomitant]
     Active Substance: FUROSEMIDE
     Dosage: 1 DF, DOSAGE INFORMATION NOT AVAILABLE ON HOLD
     Route: 065
  11. JARDIANCE [Concomitant]
     Active Substance: EMPAGLIFLOZIN
     Dosage: UNK
  12. JARDIANCE [Concomitant]
     Active Substance: EMPAGLIFLOZIN
     Dosage: 1 DF
  13. PREDNISONE ACETATE [Concomitant]
     Active Substance: PREDNISONE ACETATE
     Dosage: 5 MG, DAILY
  14. PREDNISONE ACETATE [Concomitant]
     Active Substance: PREDNISONE ACETATE
     Dosage: 5 MG, 1X/DAY
     Route: 065

REACTIONS (8)
  - COVID-19 pneumonia [Fatal]
  - Pneumonia [Unknown]
  - COVID-19 [Not Recovered/Not Resolved]
  - Thrombosis [Not Recovered/Not Resolved]
  - Illness [Unknown]
  - Off label use [Unknown]
  - Off label use [Unknown]
  - Intentional product use issue [Unknown]

NARRATIVE: CASE EVENT DATE: 20210224
